FAERS Safety Report 12764129 (Version 4)
Quarter: 2016Q4

REPORT INFORMATION
  Report Type: Spontaneous
  Country: US (occurrence: US)
  Receive Date: 20160920
  Receipt Date: 20161019
  Transmission Date: 20170207
  Serious: Yes (Other)
  Sender: FDA-Public Use
  Company Number: US-UNITED THERAPEUTICS-UNT-2016-014539

PATIENT
  Age: 66 Year
  Sex: Female
  Weight: 90.7 kg

DRUGS (6)
  1. COUMADIN [Concomitant]
     Active Substance: WARFARIN SODIUM
     Indication: PRODUCT USED FOR UNKNOWN INDICATION
  2. ADEMPAS [Concomitant]
     Active Substance: RIOCIGUAT
     Indication: PRODUCT USED FOR UNKNOWN INDICATION
  3. UPTRAVI [Suspect]
     Active Substance: SELEXIPAG
     Dosage: 1600 ?G, BID
     Route: 065
     Dates: start: 20160909
  4. LETAIRIS [Suspect]
     Active Substance: AMBRISENTAN
     Indication: PRODUCT USED FOR UNKNOWN INDICATION
     Dosage: 5 MG, QD
     Route: 065
     Dates: start: 20151020
  5. TYVASO [Suspect]
     Active Substance: TREPROSTINIL
     Indication: PULMONARY HYPERTENSION
     Dosage: 54-72 MICROGRAMS, QID
     Dates: start: 20160303
  6. UPTRAVI [Suspect]
     Active Substance: SELEXIPAG
     Indication: PRODUCT USED FOR UNKNOWN INDICATION
     Dosage: 1200 ?G, BID
     Route: 065
     Dates: end: 20160909

REACTIONS (16)
  - Platelet count decreased [Not Recovered/Not Resolved]
  - Diarrhoea [Unknown]
  - Abdominal pain upper [Unknown]
  - Chest pain [Not Recovered/Not Resolved]
  - Vomiting [Unknown]
  - Hypertension [Not Recovered/Not Resolved]
  - Oedema peripheral [Unknown]
  - Oedema [Unknown]
  - Erythema [Unknown]
  - Splenomegaly [Unknown]
  - Product use issue [Unknown]
  - Hyperhidrosis [Unknown]
  - Dyspnoea [Unknown]
  - Portal hypertension [Unknown]
  - Headache [Unknown]
  - Nausea [Recovered/Resolved]

NARRATIVE: CASE EVENT DATE: 201609
